FAERS Safety Report 9772872 (Version 2)
Quarter: 2014Q1

REPORT INFORMATION
  Report Type: Spontaneous
  Country: ES (occurrence: ES)
  Receive Date: 20131219
  Receipt Date: 20140203
  Transmission Date: 20141002
  Serious: Yes (Death)
  Sender: FDA-Public Use
  Company Number: ES-PFIZER INC-2013360959

PATIENT
  Sex: 0

DRUGS (2)
  1. TIGECYCLINE [Suspect]
     Indication: KLEBSIELLA INFECTION
  2. GENTAMYCIN [Suspect]
     Indication: KLEBSIELLA INFECTION

REACTIONS (1)
  - Klebsiella sepsis [Fatal]
